FAERS Safety Report 14997602 (Version 2)
Quarter: 2018Q3

REPORT INFORMATION
  Report Type: Spontaneous
  Country: JP (occurrence: JP)
  Receive Date: 20180611
  Receipt Date: 20180725
  Transmission Date: 20181010
  Serious: Yes (Hospitalization, Other)
  Sender: FDA-Public Use
  Company Number: JP-ELI_LILLY_AND_COMPANY-JP201805014628AA

PATIENT
  Age: 56 Year
  Sex: Female
  Weight: 34 kg

DRUGS (1)
  1. ZYPREXA [Suspect]
     Active Substance: OLANZAPINE
     Indication: DEPRESSION
     Dosage: 5 MG, DAILY
     Route: 065
     Dates: start: 201701

REACTIONS (3)
  - Decubitus ulcer [Recovered/Resolved]
  - Dehydration [Unknown]
  - Parkinsonism [Recovering/Resolving]
